FAERS Safety Report 26108117 (Version 1)
Quarter: 2025Q4

REPORT INFORMATION
  Report Type: Spontaneous
  Country: US (occurrence: None)
  Receive Date: 20251129
  Receipt Date: 20251129
  Transmission Date: 20260117
  Serious: Yes (Disabling)
  Sender: FDA-CTU
  Company Number: None

PATIENT
  Age: 39 Year
  Sex: Female
  Weight: 51.75 kg

DRUGS (1)
  1. NITROFURANTOIN [Suspect]
     Active Substance: NITROFURANTOIN
     Indication: Urinary tract infection
     Dosage: 1 CAPSULE TWICE A DAY ORAL
     Route: 048
     Dates: start: 20251127, end: 20251129

REACTIONS (7)
  - Pyrexia [None]
  - Lymphadenopathy [None]
  - Headache [None]
  - Neck pain [None]
  - Diarrhoea [None]
  - Back pain [None]
  - Pain [None]

NARRATIVE: CASE EVENT DATE: 20251128
